FAERS Safety Report 25917020 (Version 1)
Quarter: 2025Q4

REPORT INFORMATION
  Report Type: Report from Study
  Country: US (occurrence: US)
  Receive Date: 20251014
  Receipt Date: 20251014
  Transmission Date: 20260118
  Serious: Yes (Hospitalization, Other)
  Sender: ROCHE
  Company Number: US-ROCHE-10000085541

PATIENT
  Age: 79 Year
  Sex: Female
  Weight: 69.85 kg

DRUGS (34)
  1. MYCOPHENOLATE MOFETIL [Suspect]
     Active Substance: MYCOPHENOLATE MOFETIL
     Indication: Nephrosclerosis
     Route: 048
     Dates: start: 20240618
  2. MYCOPHENOLATE MOFETIL [Suspect]
     Active Substance: MYCOPHENOLATE MOFETIL
     Indication: Focal segmental glomerulosclerosis
  3. Albuterol (VENTOLIN IN) [Concomitant]
     Route: 055
  4. XANAX [Concomitant]
     Active Substance: ALPRAZOLAM
     Indication: Anxiety
     Dosage: TAKE 0.25 MG BY MOUTH AT NIGHT IF NEEDED FOR ANXIETY
     Route: 048
  5. benzonatate (TESSALON) [Concomitant]
     Dosage: TAKE 100 MG BY MOUTH IF NEEDED - ORAL
     Route: 048
  6. bethanechol (URECHOLINE) [Concomitant]
     Dosage: TAKE 25 MG BY MOUTH 1 (ONE) TIME EACH DAY IF NEEDED
     Route: 048
  7. Cholecalciferol (Vitamin D) [Concomitant]
     Dosage: TAKE BY MOUTH 1 (ONE) TIME EACH DAY
     Route: 048
  8. clobetasol propionate (Temovate ) [Concomitant]
  9. PLAVIX [Concomitant]
     Active Substance: CLOPIDOGREL BISULFATE
     Dosage: TAKE 75 MG BY MOUTH 1 (ONE) TIME EACH DAY - ORAL
     Route: 048
  10. corticotropin (Acthar) [Concomitant]
     Dosage: INJECT 1 ML (80 UNITS TOTAL) UNDER THE SKIN 2 (TWO) TIMESAWEEK MONDAYS AND THURSDAY - SUBCUTANEOU
     Route: 058
     Dates: start: 20250210
  11. DEXILANT [Concomitant]
     Active Substance: DEXLANSOPRAZOLE
     Dosage: TAKE 60 MG BY MOUTH 1 (ONE) TIME EACH DAY - ORAL
     Route: 048
  12. dicyclomine (BENTYL) [Concomitant]
     Dosage: TAKE 10 MG BY MOUTH IN THE MORNING AND 10 MG IN THE EVENING AND 10 MG BEFORE BEDTIME. - ORAL
     Route: 048
  13. ergocalciferol (VITAMIN D-2) [Concomitant]
     Dosage: TAKE 50,000 UNITS BY MOUTH 1 (ONE) TIME PER WEEK ORAL
     Route: 048
  14. NEURONTIN [Concomitant]
     Active Substance: GABAPENTIN
     Dosage: TAKE 100 MG BY MOUTH IN THE MORNING AND 100 MG IN THE EVENING. - ORAL
     Route: 048
  15. guaiFENesin (MUCINEX) [Concomitant]
     Dosage: TAKE 600 MG BY MOUTH IF NEEDED - ORAL
     Route: 048
  16. Insulin Aspart (NOVOLOG FLEXPEN SC) [Concomitant]
     Dosage: INJECT UNDER THE SKIN IF NEEDED - SUBCUTANEOUS
     Route: 058
  17. DUONEB [Concomitant]
     Active Substance: ALBUTEROL SULFATE\IPRATROPIUM BROMIDE
     Dosage: TAKE 3 ML BY NEBULIZATION EVERY 6 (SIX) HOURS - NEBULIZATION
  18. COZAAR [Concomitant]
     Active Substance: LOSARTAN POTASSIUM
     Indication: Blood pressure measurement
     Dosage: TAKE 1 TABLET (50 MG TOTAL) BY MOUTH 1 (ONE) TIME EACH DAY AS NEEDED FOR BP - ORAL
     Route: 048
     Dates: start: 20250407, end: 20250913
  19. metOLazone (ZAROXOLYN) [Concomitant]
     Indication: Oedema
     Dosage: TAKE 1/2 TABLET AS DIRECTED AS NEEDED FOR EDEMA
     Dates: start: 20250708, end: 20250913
  20. ZOFRAN [Concomitant]
     Active Substance: ONDANSETRON HYDROCHLORIDE
     Indication: Nausea
     Dosage: TAKE BY MOUTH EVERY 8 (EIGHT) HOURS IF NEEDED FOR NAUSEA OR VOMITING - ORAL
     Route: 048
  21. ZOFRAN [Concomitant]
     Active Substance: ONDANSETRON HYDROCHLORIDE
     Indication: Vomiting
  22. oxyCODONE-acetaminophen (PERCOCET) [Concomitant]
     Dosage: TAKE 1 TABLET BY MOUTH IF NEEDED FOR MODERATE PAIN - ORAL
     Route: 048
  23. CRESTOR [Concomitant]
     Active Substance: ROSUVASTATIN CALCIUM
     Dosage: TAKE 40 MG BY MOUTH 1 (ONE) TIME EACH DAY - ORAL
     Route: 048
  24. SUCRALFATE [Concomitant]
     Active Substance: SUCRALFATE
     Dosage: TAKE 1 G BY MOUTH IN THE MORNING AND 1 G AT NOON AND 1 G IN THE EVENING AND 1 G BEFORE BEDTIME. - OR
     Route: 048
  25. STIOLTO RESPIMAT [Concomitant]
     Active Substance: OLODATEROL HYDROCHLORIDE\TIOTROPIUM BROMIDE MONOHYDRATE
     Dosage: INHALE 2 INHALATION. IN THE MORNING. - INHALATION
     Route: 055
  26. FARXIGA [Concomitant]
     Active Substance: DAPAGLIFLOZIN PROPANEDIOL
     Dosage: TAKE S MG BY MOUTH 1 (ONE) TIME EACH DAY - ORAL
     Route: 048
     Dates: start: 20250429
  27. LEXAPRO [Concomitant]
     Active Substance: ESCITALOPRAM OXALATE
     Dosage: TAKE 20 MG BY MOUTH 1 (ONE) TIME EACH DAY - ORAL
     Route: 048
  28. PREDNISONE [Concomitant]
     Active Substance: PREDNISONE
  29. LASIX [Concomitant]
     Active Substance: FUROSEMIDE
     Dosage: TAKE 1 TABLET EVERY DAY ORAL
     Route: 048
     Dates: start: 20250407
  30. SYNTHROID [Concomitant]
     Active Substance: LEVOTHYROXINE SODIUM
     Dosage: TAKE 50 MCG BY MOUTH 1 (ONE) TIME EACH DAY - ORAL
     Route: 048
  31. potassium chloride (KLOR-CON M20) [Concomitant]
     Dosage: TAKE 1 TABLET (20 MEQ TOTAL) BY MOUTH IN THE MORNING AND 1 TABLET (20 MEQ TOTAL) IN THE EVENING.- OR
     Route: 048
     Dates: start: 20250407
  32. propranolol LA (INDERAL LA) [Concomitant]
     Dosage: TAKE 80 MG BY MOUTH 1 (ONE) TIME EACH DAY DO NOT CRUSH, CHEW, OR SPLIT. - ORAL
     Route: 048
  33. setraline (zoloft) [Concomitant]
     Route: 048
  34. Iron vitamin c (Vitron C) [Concomitant]
     Route: 048

REACTIONS (12)
  - Off label use [Unknown]
  - Pneumonia [Recovering/Resolving]
  - Deafness [Unknown]
  - Respiratory tract infection [Unknown]
  - Neuropathy peripheral [Unknown]
  - Diabetes mellitus [Unknown]
  - Overweight [Unknown]
  - Focal segmental glomerulosclerosis [Unknown]
  - Arthritis [Unknown]
  - Headache [Unknown]
  - Bone disorder [Unknown]
  - Muscle spasms [Unknown]
